FAERS Safety Report 21454487 (Version 1)
Quarter: 2022Q4

REPORT INFORMATION
  Report Type: Spontaneous
  Country: US (occurrence: US)
  Receive Date: 20221013
  Receipt Date: 20221013
  Transmission Date: 20230113
  Serious: Yes (Hospitalization)
  Sender: FDA-Public Use
  Company Number: US-JNJFOC-20221003461

PATIENT

DRUGS (1)
  1. STELARA [Suspect]
     Active Substance: USTEKINUMAB
     Indication: Product used for unknown indication
     Route: 058

REACTIONS (5)
  - Muscle spasms [Unknown]
  - Fear of eating [Unknown]
  - Frequent bowel movements [Unknown]
  - Fatigue [Unknown]
  - Product dose omission issue [Unknown]
